FAERS Safety Report 16057118 (Version 1)
Quarter: 2019Q2

REPORT INFORMATION
  Report Type: Spontaneous
  Country: US (occurrence: US)
  Receive Date: 20190311
  Receipt Date: 20190311
  Transmission Date: 20190711
  Serious: No
  Sender: FDA-Public Use
  Company Number: None

PATIENT
  Age: 20 Year
  Sex: Female
  Weight: 56.7 kg

DRUGS (1)
  1. NEXPLANON [Suspect]
     Active Substance: ETONOGESTREL

REACTIONS (8)
  - Dizziness [None]
  - Chest discomfort [None]
  - Vision blurred [None]
  - Palpitations [None]
  - Pain [None]
  - Bradyphrenia [None]
  - Anxiety [None]
  - Asthenia [None]

NARRATIVE: CASE EVENT DATE: 20190212
